FAERS Safety Report 5915115-6 (Version None)
Quarter: 2008Q4

REPORT INFORMATION
  Report Type: 
  Country: None (occurrence: None)
  Receive Date: 20081010
  Receipt Date: 20081008
  Transmission Date: 20090506
  Serious: Yes (Hospitalization)
  Sender: FDA-Public Use
  Company Number: B0540769A

PATIENT
  Age: 47 Year
  Sex: Female

DRUGS (2)
  1. AMOXICILLIN + CLAVULANATE POTASSIUM [Suspect]
     Indication: URINARY TRACT INFECTION
     Route: 048
     Dates: start: 20080909, end: 20080910
  2. CLIMAVAL [Concomitant]
     Indication: MENOPAUSE
     Route: 048
     Dates: start: 20080715

REACTIONS (3)
  - EOSINOPHILIA [None]
  - NAUSEA [None]
  - VOMITING [None]
